FAERS Safety Report 9513424 (Version 2)
Quarter: 2013Q3

REPORT INFORMATION
  Report Type: Spontaneous
  Country: US (occurrence: US)
  Receive Date: 20130910
  Receipt Date: 20130910
  Transmission Date: 20140515
  Serious: Yes (Other)
  Sender: FDA-Public Use
  Company Number: US-TARO-2012P1060622

PATIENT
  Age: 75 Year
  Sex: Female
  Weight: 56.7 kg

DRUGS (11)
  1. WARFARIN SODIUM TABLETS USP 1MG [Suspect]
     Indication: ATRIAL FIBRILLATION
     Route: 048
     Dates: start: 201208, end: 201209
  2. WARFARIN SODIUM TABLETS USP 5MG [Suspect]
     Indication: ATRIAL FIBRILLATION
     Route: 048
     Dates: start: 201208
  3. WARFARIN SODIUM TABLETS USP 5MG [Suspect]
     Indication: ATRIAL FIBRILLATION
     Route: 048
     Dates: end: 201209
  4. SOTALOL [Suspect]
     Indication: PALPITATIONS
     Dates: start: 2012, end: 2012
  5. METOPROLOL ER [Suspect]
     Indication: PALPITATIONS
  6. METOPROLOL ER [Suspect]
     Indication: PALPITATIONS
     Dates: start: 2012, end: 2012
  7. FISH OIL [Concomitant]
  8. MULTIVITAMIN [Concomitant]
  9. VITAMIN B12 [Concomitant]
  10. VITAMIN D [Concomitant]
  11. THREE UNSPECIFIED EYE DROPS FOR GLAUCOMA [Concomitant]

REACTIONS (3)
  - Alopecia [Not Recovered/Not Resolved]
  - International normalised ratio increased [Recovered/Resolved]
  - Palpitations [Recovered/Resolved]
